FAERS Safety Report 20612186 (Version 1)
Quarter: 2022Q1

REPORT INFORMATION
  Report Type: Report from Study
  Country: US (occurrence: None)
  Receive Date: 20220318
  Receipt Date: 20220318
  Transmission Date: 20220424
  Serious: Yes (Death, Hospitalization)
  Sender: FDA-Public Use
  Company Number: US-Eisai Medical Research-EC-2022-110662

PATIENT
  Age: 58 Year
  Sex: Female

DRUGS (6)
  1. LENVIMA [Suspect]
     Active Substance: LENVATINIB
     Indication: Endometrial cancer
     Route: 048
     Dates: start: 20211216, end: 20220114
  2. LENVIMA [Suspect]
     Active Substance: LENVATINIB
     Indication: Colon cancer
     Route: 048
     Dates: start: 20220115, end: 20220125
  3. LENVIMA [Suspect]
     Active Substance: LENVATINIB
     Indication: Metastasis
     Route: 048
     Dates: start: 20220128, end: 20220130
  4. LENVIMA [Suspect]
     Active Substance: LENVATINIB
     Route: 048
     Dates: start: 20220131, end: 2022
  5. LENVIMA [Suspect]
     Active Substance: LENVATINIB
     Dosage: ALTERNATING AROUND 8 AND 4 MG
     Route: 048
     Dates: start: 20220204
  6. KEYTRUDA [Concomitant]
     Active Substance: PEMBROLIZUMAB

REACTIONS (3)
  - Intestinal perforation [Unknown]
  - Infection [Unknown]
  - Death [Fatal]

NARRATIVE: CASE EVENT DATE: 20220101
